FAERS Safety Report 5434319-2 (Version None)
Quarter: 2007Q3

REPORT INFORMATION
  Report Type: 
  Country: None (occurrence: None)
  Receive Date: 20070831
  Receipt Date: 20070823
  Transmission Date: 20080115
  Serious: Yes (Hospitalization)
  Sender: FDA-Public Use
  Company Number: AU-AMGEN-US238763

PATIENT
  Sex: Male
  Weight: 98 kg

DRUGS (13)
  1. NEULASTA [Suspect]
     Indication: CHEMOTHERAPY
     Route: 058
     Dates: start: 20070719
  2. RITUXIMAB [Concomitant]
     Route: 065
     Dates: start: 20070605
  3. CYCLOPHOSPHAMIDE [Concomitant]
     Route: 065
     Dates: start: 20070605
  4. PREDNISOLONE [Concomitant]
     Route: 065
     Dates: start: 20070605
  5. VINCRISTINE [Concomitant]
     Route: 065
     Dates: start: 20070605
  6. NEXIUM [Concomitant]
     Route: 065
  7. METFORMIN HCL [Concomitant]
     Route: 065
  8. ATENOLOL [Concomitant]
     Route: 065
  9. EZETIMIBE [Concomitant]
     Route: 065
  10. GTN-S [Concomitant]
     Route: 061
  11. FOLIC ACID [Concomitant]
     Route: 065
  12. PERINDOPRIL ERBUMINE [Concomitant]
     Route: 065
  13. PLAVIX [Concomitant]
     Route: 065

REACTIONS (5)
  - ABDOMINAL PAIN [None]
  - BLOOD LACTATE DEHYDROGENASE INCREASED [None]
  - BONE MARROW NECROSIS [None]
  - NEUTROPENIA [None]
  - PNEUMONIA [None]
